FAERS Safety Report 7278271-6 (Version None)
Quarter: 2011Q1

REPORT INFORMATION
  Report Type: 
  Country: None (occurrence: None)
  Receive Date: 20110202
  Receipt Date: 20110202
  Transmission Date: 20110831
  Serious: Yes (Other)
  Sender: FDA-Public Use
  Company Number: None

PATIENT
  Age: 61 Year
  Sex: Male
  Weight: 69.8539 kg

DRUGS (2)
  1. HOMATROPINE METHYLBROMIDE AND HYDROCODONE BITARTRATE [Suspect]
     Indication: COUGH
     Dosage: 1 TEASPOON EVERY 4 HOURS PO
     Route: 048
     Dates: start: 20101001, end: 20110110
  2. HOMATROPINE METHYLBROMIDE AND HYDROCODONE BITARTRATE [Suspect]
     Indication: THROAT IRRITATION
     Dosage: 1 TEASPOON EVERY 4 HOURS PO
     Route: 048
     Dates: start: 20101001, end: 20110110

REACTIONS (4)
  - INCREASED UPPER AIRWAY SECRETION [None]
  - COUGH [None]
  - CONDITION AGGRAVATED [None]
  - VISION BLURRED [None]
